FAERS Safety Report 7194584-0 (Version None)
Quarter: 2010Q4

REPORT INFORMATION
  Report Type: 
  Country: None (occurrence: None)
  Receive Date: 20101223
  Receipt Date: 20100915
  Transmission Date: 20110411
  Serious: Yes (Hospitalization)
  Sender: FDA-Public Use
  Company Number: US-AMGEN-KDL438542

PATIENT

DRUGS (14)
  1. ENBREL [Suspect]
     Indication: PRODUCT USED FOR UNKNOWN INDICATION
     Dosage: 50 MG, QWK
     Route: 058
  2. PREDNISONE [Concomitant]
  3. AMLODIPINE + VALSARTAN [Concomitant]
     Dosage: 320 MG, UNK
  4. GLIMEPIRIDE [Concomitant]
     Dosage: 1 MG, UNK
  5. TOPROL-XL [Concomitant]
     Dosage: 200 MG, UNK
  6. MAGNESIUM [Concomitant]
     Dosage: 200 MG, UNK
  7. LECITHIN [Concomitant]
     Dosage: 400 MG, UNK
  8. CYCLOBENZAPRINE HCL [Concomitant]
     Dosage: 5 MG, UNK
  9. CALCIUM [Concomitant]
     Dosage: 500 MG, UNK
  10. LOVAZA [Concomitant]
     Dosage: UNK UNK, UNK
  11. FLAX SEED OIL [Concomitant]
  12. MULTI-VITAMINS [Concomitant]
     Dosage: UNK UNK, UNK
  13. COLECALCIFEROL [Concomitant]
     Dosage: UNK UNK, UNK
  14. TRIAMTERENE AND HYDROCHLOROTHIAZIDE [Concomitant]
     Dosage: UNK UNK, UNK

REACTIONS (3)
  - COUGH [None]
  - OEDEMA PERIPHERAL [None]
  - PNEUMONIA [None]
